FAERS Safety Report 7549194-X (Version None)
Quarter: 2011Q2

REPORT INFORMATION
  Report Type: 
  Country: None (occurrence: None)
  Receive Date: 20110615
  Receipt Date: 20110606
  Transmission Date: 20111010
  Serious: Yes (Life-Threatening)
  Sender: FDA-Public Use
  Company Number: PHHY2011US50703

PATIENT
  Sex: Male

DRUGS (1)
  1. MYFORTIC [Suspect]
     Dosage: 360 MG, BID
     Route: 048

REACTIONS (3)
  - LOWER LIMB FRACTURE [None]
  - KIDNEY TRANSPLANT REJECTION [None]
  - PNEUMONIA [None]
